FAERS Safety Report 8876894 (Version 1)
Quarter: 2012Q4

REPORT INFORMATION
  Report Type: 
  Country: IN (occurrence: IN)
  Receive Date: 20121029
  Receipt Date: 20121029
  Transmission Date: 20130627
  Serious: Yes (Other)
  Sender: FDA-Public Use
  Company Number: IN-SANOFI-AVENTIS-2012SA078328

PATIENT
  Age: 66 Year
  Sex: Male

DRUGS (4)
  1. FLUOROURACIL [Suspect]
     Indication: LARYNGEAL SQUAMOUS CELL CARCINOMA
     Dosage: drug administered from D1-D5.
     Route: 065
  2. DOCETAXEL [Suspect]
     Indication: LARYNGEAL SQUAMOUS CELL CARCINOMA
     Dosage: drug administered on day 1.
     Route: 065
  3. CISPLATIN [Suspect]
     Indication: LARYNGEAL SQUAMOUS CELL CARCINOMA
     Dosage: drug administered on day 1
     Route: 065
  4. DEXAMETHASONE [Concomitant]
     Indication: PREMEDICATION
     Route: 042

REACTIONS (2)
  - Gastrointestinal toxicity [Unknown]
  - Haematotoxicity [Unknown]
